FAERS Safety Report 11886294 (Version 2)
Quarter: 2016Q1

REPORT INFORMATION
  Report Type: Report from Study
  Country: TW (occurrence: TW)
  Receive Date: 20160104
  Receipt Date: 20160205
  Transmission Date: 20160526
  Serious: Yes (Death, Hospitalization)
  Sender: FDA-Public Use
  Company Number: TW-ELI_LILLY_AND_COMPANY-TW201512005005

PATIENT
  Age: 70 Year
  Sex: Female
  Weight: 62 kg

DRUGS (12)
  1. INSULIN, LISPRO [Suspect]
     Active Substance: INSULIN LISPRO
     Indication: TYPE 2 DIABETES MELLITUS
     Dosage: 48 IU, TID
     Route: 058
     Dates: start: 20150921, end: 20151021
  2. LYRICA [Concomitant]
     Active Substance: PREGABALIN
     Indication: HYPOAESTHESIA
     Dosage: UNK
     Dates: start: 20150119, end: 20151021
  3. ELTROXIN [Concomitant]
     Active Substance: LEVOTHYROXINE
     Indication: GOITRE
     Dosage: UNK
     Dates: start: 20150119, end: 20151021
  4. TRAMTOR [Concomitant]
     Indication: BREAST CANCER
     Dosage: UNK
     Dates: start: 20150928, end: 20151021
  5. CELEBREX [Concomitant]
     Active Substance: CELECOXIB
     Indication: SPINAL CORD COMPRESSION
  6. CO-APROVEL [Concomitant]
     Active Substance: HYDROCHLOROTHIAZIDE\IRBESARTAN
     Indication: HYPERTENSION
     Dosage: UNK
     Dates: start: 20150323, end: 20151021
  7. CELEBREX [Concomitant]
     Active Substance: CELECOXIB
     Indication: SPINAL COMPRESSION FRACTURE
     Dosage: UNK
     Dates: start: 20151019, end: 20151021
  8. SIRDALUD [Concomitant]
     Active Substance: TIZANIDINE
     Indication: SPINAL CORD COMPRESSION
  9. SIRDALUD [Concomitant]
     Active Substance: TIZANIDINE
     Indication: SPINAL COMPRESSION FRACTURE
     Dosage: UNK
     Dates: start: 20151019, end: 20151021
  10. DULCOLAX (BISACODYL) [Concomitant]
     Active Substance: BISACODYL
     Indication: CONSTIPATION
     Dosage: UNK
     Dates: start: 20150831, end: 20151021
  11. LIPITOR [Concomitant]
     Active Substance: ATORVASTATIN CALCIUM
     Indication: HYPERCHOLESTEROLAEMIA
     Dosage: UNK
     Dates: start: 20150119, end: 20151021
  12. XELODA [Concomitant]
     Active Substance: CAPECITABINE
     Indication: BREAST CANCER
     Dosage: UNK
     Dates: start: 20150831, end: 20151021

REACTIONS (6)
  - Altered state of consciousness [Recovered/Resolved]
  - Hypovolaemic shock [Fatal]
  - Myocardial ischaemia [Not Recovered/Not Resolved]
  - Hypoglycaemia [Recovered/Resolved]
  - Upper gastrointestinal haemorrhage [Fatal]
  - Urinary tract infection [Not Recovered/Not Resolved]

NARRATIVE: CASE EVENT DATE: 20151021
